FAERS Safety Report 14226474 (Version 1)
Quarter: 2017Q4

REPORT INFORMATION
  Report Type: Spontaneous
  Country: FR (occurrence: FR)
  Receive Date: 20171127
  Receipt Date: 20171127
  Transmission Date: 20180321
  Serious: Yes (Hospitalization, Other)
  Sender: FDA-Public Use
  Company Number: FR-PFIZER INC-2017505975

PATIENT
  Age: 52 Year
  Sex: Female

DRUGS (12)
  1. MIDOSTAURIN [Suspect]
     Active Substance: MIDOSTAURIN
     Indication: ACUTE MYELOID LEUKAEMIA
     Dosage: 50 MG, 2X/DAY
     Route: 042
     Dates: start: 20171014
  2. ESIDREX [Suspect]
     Active Substance: HYDROCHLOROTHIAZIDE
     Indication: HYPERTENSION
     Dosage: 12.5 MG, DAILY
     Route: 048
     Dates: start: 20171019, end: 20171101
  3. PARACETAMOL [Concomitant]
     Active Substance: ACETAMINOPHEN
     Dosage: UNK
  4. DAUNORUBICIN [Suspect]
     Active Substance: DAUNORUBICIN
     Indication: ACUTE MYELOID LEUKAEMIA
     Dosage: 155 MG, UNK
     Route: 042
     Dates: start: 20170930
  5. ZOPHREN [Concomitant]
     Active Substance: ONDANSETRON
     Dosage: UNK
  6. CYTARABINE. [Suspect]
     Active Substance: CYTARABINE
     Indication: ACUTE MYELOID LEUKAEMIA
     Dosage: 340 MG, UNK
     Route: 042
     Dates: start: 20170930
  7. OROZAMUDOL [Concomitant]
     Active Substance: TRAMADOL
     Dosage: UNK
  8. PRIMPERAN [Concomitant]
     Active Substance: METOCLOPRAMIDE HYDROCHLORIDE
     Dosage: UNK
  9. AMBISOME [Concomitant]
     Active Substance: AMPHOTERICIN B
     Dosage: UNK
     Dates: start: 20171021, end: 20171029
  10. AMLOR [Concomitant]
     Active Substance: AMLODIPINE BESYLATE
     Dosage: UNK
     Dates: start: 20171012, end: 20171101
  11. DIFFU K [Concomitant]
     Active Substance: POTASSIUM CHLORIDE
     Dosage: UNK
  12. TRIATEC [Suspect]
     Active Substance: RAMIPRIL
     Indication: HYPERTENSION
     Dosage: 2.5 MG, DAILY
     Route: 048
     Dates: start: 20171017, end: 20171101

REACTIONS (8)
  - Diabetes insipidus [Recovered/Resolved]
  - Hypernatraemia [Recovered/Resolved]
  - Acute kidney injury [Recovering/Resolving]
  - Hyperglycaemic hyperosmolar nonketotic syndrome [Recovered/Resolved]
  - Asthenia [Recovered/Resolved]
  - Pancreatitis [Recovering/Resolving]
  - Hypothermia [Recovered/Resolved]
  - Somnolence [Recovered/Resolved]

NARRATIVE: CASE EVENT DATE: 20171030
